FAERS Safety Report 7080718-5 (Version None)
Quarter: 2010Q4

REPORT INFORMATION
  Report Type: 
  Country: None (occurrence: None)
  Receive Date: 20101103
  Receipt Date: 20101022
  Transmission Date: 20110411
  Serious: Yes (Hospitalization)
  Sender: FDA-Public Use
  Company Number: JP-ASTRAZENECA-2010SE40358

PATIENT
  Age: 35 Year
  Sex: Male

DRUGS (9)
  1. SEROQUEL [Suspect]
     Indication: SCHIZOPHRENIA
     Route: 048
  2. LULLAN [Concomitant]
  3. BENZALIN [Concomitant]
  4. LEXOTAN [Concomitant]
  5. GASMOTIN [Concomitant]
  6. NU-LOTAN [Concomitant]
     Indication: HYPERTENSION
  7. CERCINE [Concomitant]
  8. SILECE [Concomitant]
  9. TAKEPRON [Concomitant]

REACTIONS (2)
  - JAW FRACTURE [None]
  - PULMONARY EMBOLISM [None]
